FAERS Safety Report 6527301-5 (Version None)
Quarter: 2010Q1

REPORT INFORMATION
  Report Type: 
  Country: None (occurrence: None)
  Receive Date: 20100105
  Receipt Date: 20090508
  Transmission Date: 20100710
  Serious: No
  Sender: FDA-Public Use
  Company Number: US-TYCO HEALTHCARE/MALLINCKRODT-T200901021

PATIENT
  Sex: Female

DRUGS (12)
  1. OPTIMARK [Suspect]
     Indication: NUCLEAR MAGNETIC RESONANCE IMAGING BRAIN
     Dosage: 15 ML, SINGLE
     Dates: start: 20090506, end: 20090506
  2. AVONEX                             /05982701/ [Concomitant]
     Indication: MULTIPLE SCLEROSIS
     Dosage: 30 MG, WEEKLY
     Route: 030
  3. MULTI-VIT [Concomitant]
     Dosage: 1 TAB QD
     Route: 048
  4. VITAMIN A [Concomitant]
     Dosage: 2000 UNITS, DAILY
     Route: 048
  5. VITAMIN A                          /00056001/ [Concomitant]
     Dosage: 8000 UNITS, QD
     Route: 048
  6. KETOPROFEN [Concomitant]
     Indication: HEADACHE
     Dosage: 1 CAP QD
     Route: 048
  7. MECLIZINE                          /00072801/ [Concomitant]
     Indication: DIZZINESS
     Dosage: 25 MG, BID
     Route: 048
  8. MINOCYCLINE [Concomitant]
     Indication: MULTIPLE SCLEROSIS
     Dosage: 100 MG, BID
     Route: 048
  9. ZITHROMAX [Concomitant]
     Indication: MULTIPLE SCLEROSIS
     Dosage: 250 MG, 3 X WEEK
  10. PROVIGIL [Concomitant]
     Indication: FATIGUE
     Dosage: 100 MG, QD
     Route: 048
  11. CAMILA [Concomitant]
     Indication: CONTRACEPTION
     Dosage: 1 TAB, QD
     Route: 048
  12. IBUPROFEN [Concomitant]
     Dosage: 800 MG, PRN
     Route: 048

REACTIONS (2)
  - DYSGEUSIA [None]
  - EATING DISORDER [None]
